FAERS Safety Report 10489219 (Version 1)
Quarter: 2014Q4

REPORT INFORMATION
  Report Type: Spontaneous
  Country: US (occurrence: US)
  Receive Date: 20141002
  Receipt Date: 20141002
  Transmission Date: 20150528
  Serious: No
  Sender: FDA-Public Use
  Company Number: US-PFIZER INC-2014265778

PATIENT
  Age: 57 Year
  Sex: Female
  Weight: 54.42 kg

DRUGS (1)
  1. IBUPROFEN. [Suspect]
     Active Substance: IBUPROFEN
     Dosage: MIGHT BE 800MG ONCE OR TWICE A DAY
     Dates: start: 2013

REACTIONS (2)
  - Foreign body [Unknown]
  - Gastric disorder [Unknown]
